FAERS Safety Report 25107563 (Version 2)
Quarter: 2025Q2

REPORT INFORMATION
  Report Type: Report from Study
  Country: US (occurrence: US)
  Receive Date: 20250321
  Receipt Date: 20250527
  Transmission Date: 20250717
  Serious: Yes (Other)
  Sender: ABBVIE
  Company Number: US-ABBVIE-6185680

PATIENT
  Age: 87 Year
  Sex: Female
  Weight: 76.203 kg

DRUGS (1)
  1. SKYRIZI [Suspect]
     Active Substance: RISANKIZUMAB-RZAA
     Indication: Psoriasis
     Dosage: START DATE TEXT: ABOUT A YEAR AND A HALF AGO
     Route: 058
     Dates: start: 2023

REACTIONS (3)
  - Blindness [Not Recovered/Not Resolved]
  - Arthropod infestation [Recovering/Resolving]
  - Dry eye [Not Recovered/Not Resolved]

NARRATIVE: CASE EVENT DATE: 20250201
